FAERS Safety Report 4796829-0 (Version None)
Quarter: 2005Q4

REPORT INFORMATION
  Report Type: 
  Country: None (occurrence: None)
  Receive Date: 20051011
  Receipt Date: 20051011
  Transmission Date: 20060501
  Serious: Yes (Life-Threatening)
  Sender: FDA-Public Use
  Company Number: None

PATIENT
  Sex: Male
  Weight: 106.8 kg

DRUGS (1)
  1. OMALIZUMB NOVARTIS [Suspect]
     Indication: ASTHMA
     Dosage: 300MG 4 WEEKS SQ
     Route: 058
     Dates: start: 20050125, end: 20050823

REACTIONS (1)
  - MULTIPLE MYELOMA [None]
